FAERS Safety Report 11856284 (Version 3)
Quarter: 2016Q2

REPORT INFORMATION
  Report Type: Report from Study
  Country: JP (occurrence: JP)
  Receive Date: 20151221
  Receipt Date: 20160607
  Transmission Date: 20160815
  Serious: Yes (Other)
  Sender: FDA-Public Use
  Company Number: JP-OTSUKA-2015_016918

PATIENT
  Age: 61 Year
  Sex: Male
  Weight: 78 kg

DRUGS (6)
  1. ISOLEUCINE W/LEUCINE/VALINE [Concomitant]
     Active Substance: ISOLEUCINE\LEUCINE\VALINE
     Indication: PRODUCT USED FOR UNKNOWN INDICATION
     Dosage: 3 DF, DAILY DOSE
     Route: 048
  2. ALDACTONE A [Concomitant]
     Active Substance: SPIRONOLACTONE
     Indication: FLUID RETENTION
     Dosage: 50 MG, DAILY DOSE
     Route: 048
  3. LASIX M [Concomitant]
     Active Substance: FUROSEMIDE
     Indication: FLUID RETENTION
     Dosage: 20 MG, DAILY DOSE
     Route: 048
  4. TOLVAPTAN [Suspect]
     Active Substance: TOLVAPTAN
     Indication: FLUID RETENTION
     Dosage: 7.5 MG, QD IN THE MORNING
     Route: 048
     Dates: start: 20150416, end: 20151204
  5. URSO S [Concomitant]
     Indication: PRODUCT USED FOR UNKNOWN INDICATION
     Dosage: 600 MG, DAILY DOSE
     Route: 048
  6. ESOMEPRAZOLE MAGNESIUM. [Concomitant]
     Active Substance: ESOMEPRAZOLE MAGNESIUM
     Indication: DUODENAL ULCER
     Dosage: 20 MG, DAILY DOSE
     Route: 048

REACTIONS (1)
  - Hepatic encephalopathy [Recovered/Resolved]

NARRATIVE: CASE EVENT DATE: 20150507
